FAERS Safety Report 8051366-5 (Version None)
Quarter: 2012Q1

REPORT INFORMATION
  Report Type: 
  Country: None (occurrence: None)
  Receive Date: 20120117
  Receipt Date: 20120110
  Transmission Date: 20120608
  Serious: Yes (Other)
  Sender: FDA-Public Use
  Company Number: US-ASTRAZENECA-2012SE00553

PATIENT
  Age: 61 Year
  Sex: Male

DRUGS (22)
  1. FISH OIL [Concomitant]
     Dosage: EVERYDAY
  2. ASPIRIN [Concomitant]
  3. NITROSTAT [Concomitant]
     Indication: CHEST PAIN
     Dosage: 1 TABLET UNDER THE TONGUE EVERY 5 MINUTES, MAXIMUM THREE DOSES
     Route: 060
  4. NIANCIN [Concomitant]
  5. AMIODARONE HCL [Concomitant]
  6. CRESTOR [Suspect]
     Route: 048
  7. PREVACID [Concomitant]
  8. ZYRTEC [Concomitant]
  9. ISOSORBIDE MONONITRATE [Concomitant]
  10. FLONASE [Concomitant]
     Dosage: 50 MCG/ACT 2 SPRAY DAILY
  11. TERAZOSIN HCL [Concomitant]
  12. TORSEMIDE [Concomitant]
  13. ZANTAC [Concomitant]
  14. ALBUTEROL SULFATE HPA [Concomitant]
     Dosage: 2 PUFFS EVERY 6 HOURS AS REQUIRED
  15. ZESTRIL [Suspect]
     Route: 048
  16. TOPROL-XL [Suspect]
     Route: 048
  17. LORTAB [Concomitant]
     Dosage: 10-500 MG, 1 EVERY 6 HOURS AS REQUIRED
  18. KLONOPIN [Concomitant]
  19. FIBERCON [Concomitant]
  20. COUMADIN [Concomitant]
  21. LEVOTHYROXINE SODIUM [Concomitant]
  22. MIRALAX [Concomitant]

REACTIONS (3)
  - CARDIAC FAILURE CONGESTIVE [None]
  - PALPITATIONS [None]
  - CHEST PAIN [None]
